FAERS Safety Report 4685021-6 (Version None)
Quarter: 2005Q2

REPORT INFORMATION
  Report Type: 
  Country: None (occurrence: None)
  Receive Date: 20050531
  Receipt Date: 20050415
  Transmission Date: 20051028
  Serious: No
  Sender: FDA-Public Use
  Company Number: WAES 0504USA02601

PATIENT
  Age: 62 Year
  Sex: Male

DRUGS (4)
  1. ZETIA [Suspect]
     Indication: HYPERLIPIDAEMIA
     Dosage: 10 MG/DAILY/PO
     Route: 048
  2. LIPITOR [Concomitant]
  3. PREVACID [Concomitant]
  4. PROTONIX [Concomitant]

REACTIONS (4)
  - DIARRHOEA [None]
  - INFLUENZA LIKE ILLNESS [None]
  - NAUSEA [None]
  - RASH [None]
